FAERS Safety Report 6908852-8 (Version None)
Quarter: 2010Q3

REPORT INFORMATION
  Report Type: 
  Country: None (occurrence: None)
  Receive Date: 20100805
  Receipt Date: 20100728
  Transmission Date: 20110219
  Serious: Yes (Other)
  Sender: FDA-Public Use
  Company Number: B0667928A

PATIENT
  Age: 75 Year
  Sex: Male

DRUGS (1)
  1. SERETIDE [Suspect]
     Indication: PRODUCT USED FOR UNKNOWN INDICATION
     Route: 055

REACTIONS (2)
  - GINGIVAL SWELLING [None]
  - OESOPHAGEAL CANDIDIASIS [None]
